FAERS Safety Report 12238423 (Version 1)
Quarter: 2016Q2

REPORT INFORMATION
  Report Type: Spontaneous
  Country: JP (occurrence: JP)
  Receive Date: 20160405
  Receipt Date: 20160405
  Transmission Date: 20160815
  Serious: Yes (Other)
  Sender: FDA-Public Use
  Company Number: JP-PFIZER INC-2016179922

PATIENT
  Age: 63 Year
  Sex: Female

DRUGS (4)
  1. BREDININ [Concomitant]
     Active Substance: MIZORIBINE
     Dosage: 50 MG, UNK
  2. MEDROL [Suspect]
     Active Substance: METHYLPREDNISOLONE
  3. RHEUMATREX [Suspect]
     Active Substance: METHOTREXATE SODIUM
     Dosage: 2 MG, WEEKLY
  4. RHEUMATREX [Suspect]
     Active Substance: METHOTREXATE SODIUM
     Indication: RHEUMATOID ARTHRITIS
     Dosage: 4 MG, WEEKLY  (2 MG MORNING AND EVENING)
     Route: 048

REACTIONS (5)
  - Malaise [Unknown]
  - Joint destruction [Not Recovered/Not Resolved]
  - Somnolence [Unknown]
  - Dry eye [Unknown]
  - Dry mouth [Unknown]
